FAERS Safety Report 5788297-7 (Version None)
Quarter: 2008Q2

REPORT INFORMATION
  Report Type: 
  Country: None (occurrence: None)
  Receive Date: 20080625
  Receipt Date: 20080618
  Transmission Date: 20081010
  Serious: Yes (Death, Hospitalization)
  Sender: FDA-Public Use
  Company Number: US-MERCK-0806USA07705

PATIENT
  Age: 52 Year
  Sex: Female

DRUGS (2)
  1. ZOCOR [Suspect]
     Route: 065
  2. ACETAMINOPHEN [Concomitant]
     Route: 065

REACTIONS (1)
  - HEPATOCELLULAR INJURY [None]
